FAERS Safety Report 6329572-7 (Version None)
Quarter: 2009Q3

REPORT INFORMATION
  Report Type: 
  Country: None (occurrence: None)
  Receive Date: 20090825
  Receipt Date: 20090825
  Transmission Date: 20100115
  Serious: Yes (Other)
  Sender: FDA-Public Use
  Company Number: None

PATIENT
  Sex: Male
  Weight: 63.5036 kg

DRUGS (2)
  1. PROPECIA [Suspect]
     Indication: ANDROGENETIC ALOPECIA
     Dosage: 1 MG DAILY PO
     Route: 048
     Dates: start: 20050201, end: 20050715
  2. PROPECIA [Suspect]
     Indication: ANDROGENETIC ALOPECIA
     Dosage: 1 MG DAILY PO
     Route: 048
     Dates: start: 20070801, end: 20071001

REACTIONS (7)
  - DEPRESSION [None]
  - FATIGUE [None]
  - HORMONE LEVEL ABNORMAL [None]
  - LOSS OF LIBIDO [None]
  - MENTAL IMPAIRMENT [None]
  - PEYRONIE'S DISEASE [None]
  - QUALITY OF LIFE DECREASED [None]
